APPROVED DRUG PRODUCT: DICLOFENAC SODIUM
Active Ingredient: DICLOFENAC SODIUM
Strength: 1.5%
Dosage Form/Route: SOLUTION;TOPICAL
Application: A203818 | Product #001 | TE Code: AT
Applicant: SUN PHARMA CANADA INC
Approved: Nov 26, 2014 | RLD: No | RS: Yes | Type: RX